FAERS Safety Report 14683251 (Version 2)
Quarter: 2018Q2

REPORT INFORMATION
  Report Type: Spontaneous
  Country: US (occurrence: US)
  Receive Date: 20180327
  Receipt Date: 20180406
  Transmission Date: 20180711
  Serious: Yes (Other)
  Sender: FDA-Public Use
  Company Number: US-AMGEN-USASP2018038202

PATIENT
  Age: 91 Year
  Sex: Male
  Weight: 63.2 kg

DRUGS (1)
  1. ARANESP [Suspect]
     Active Substance: DARBEPOETIN ALFA
     Indication: NEPHROGENIC ANAEMIA
     Dosage: 100 MUG, QWK
     Route: 042
     Dates: start: 20150418, end: 20180319

REACTIONS (2)
  - Transfusion [Not Recovered/Not Resolved]
  - Therapy non-responder [Not Recovered/Not Resolved]
